FAERS Safety Report 19456265 (Version 1)
Quarter: 2021Q2

REPORT INFORMATION
  Report Type: Spontaneous
  Country: US (occurrence: US)
  Receive Date: 20210624
  Receipt Date: 20210624
  Transmission Date: 20210717
  Serious: No
  Sender: FDA-Public Use
  Company Number: None

PATIENT
  Age: 37 Year
  Sex: Female

DRUGS (10)
  1. CYCLOBENZAPRINE HCL (CYCLOBENZAPRINE) [Concomitant]
     Active Substance: CYCLOBENZAPRINE HYDROCHLORIDE
  2. GABAPENTIN (GABAPENTIN) [Concomitant]
     Active Substance: GABAPENTIN
  3. SAXENDA [Suspect]
     Active Substance: LIRAGLUTIDE
  4. ONDANSETRON [Concomitant]
     Active Substance: ONDANSETRON
  5. TIZANDINE [Concomitant]
     Active Substance: TIZANIDINE
  6. PROMETHAZINE HCL (PHENERGAN) [Concomitant]
  7. HYDROCODONE?ACETAMINOPHEN [Concomitant]
     Active Substance: ACETAMINOPHEN\HYDROCODONE
  8. CLONAZEPAM. [Concomitant]
     Active Substance: CLONAZEPAM
  9. SERTRALINE HCL (SERTRALINE) [Concomitant]
  10. RIZATRIPTAN BENZOATE (MAXALT) [Concomitant]

REACTIONS (11)
  - Post procedural complication [None]
  - Spinal operation [None]
  - Nausea [None]
  - Vomiting [None]
  - Atrial fibrillation [None]
  - Skin discolouration [None]
  - Pulse absent [None]
  - Unresponsive to stimuli [None]
  - General physical health deterioration [None]
  - Cardiac arrest [None]
  - Ventricular fibrillation [None]
